FAERS Safety Report 18204345 (Version 1)
Quarter: 2020Q3

REPORT INFORMATION
  Report Type: Report from Study
  Country: KR (occurrence: KR)
  Receive Date: 20200828
  Receipt Date: 20200828
  Transmission Date: 20201103
  Serious: Yes (Death)
  Sender: FDA-Public Use
  Company Number: KR-CELLTRION INC.-2020KR026174

PATIENT

DRUGS (14)
  1. TRACINON [Concomitant]
     Indication: OSTEOARTHRITIS
     Dosage: 1 MG, QD
     Route: 048
     Dates: start: 20200224, end: 20200415
  2. DIACERON [Concomitant]
     Indication: OSTEOARTHRITIS
     Dosage: 50 MG, BID
     Route: 048
     Dates: start: 20200224, end: 20200505
  3. NEXIUM [Concomitant]
     Active Substance: ESOMEPRAZOLE MAGNESIUM
     Indication: GASTROINTESTINAL DISORDER PROPHYLAXIS
     Dosage: 40 MG, QD
     Route: 048
     Dates: start: 20200331, end: 20200415
  4. DICAMAX 1000 [Concomitant]
     Indication: OSTEOPOROSIS
     Dosage: 1 TAB, QD
     Route: 048
     Dates: start: 20200224, end: 20200415
  5. LAYLA [Concomitant]
     Indication: OSTEOARTHRITIS
     Dosage: 1 TAB, BID
     Route: 048
     Dates: start: 20200224, end: 20200505
  6. SEPTRIN [Concomitant]
     Active Substance: SULFAMETHOXAZOLE\TRIMETHOPRIM
     Indication: INFECTION PROPHYLAXIS
     Dosage: 1 TAB, QD
     Route: 048
     Dates: start: 20200224, end: 20200430
  7. PARAMACET SEMI [Concomitant]
     Indication: OSTEOARTHRITIS
     Dosage: 1 TAB, BID
     Route: 048
     Dates: start: 20200224, end: 20200505
  8. MELAX [Concomitant]
     Indication: PAIN PROPHYLAXIS
     Dosage: 7.5 MG, BID
     Route: 048
     Dates: start: 20200406, end: 20200415
  9. TRUXIMA [Suspect]
     Active Substance: RITUXIMAB-ABBS
     Indication: DIFFUSE LARGE B-CELL LYMPHOMA
     Dosage: 540 MILLIGRAM EVERY 3 WEEKS
     Route: 042
     Dates: start: 20200224, end: 20200407
  10. MEGACE F [Concomitant]
     Indication: PROPHYLAXIS
     Dosage: 625 MG, QD
     Route: 048
     Dates: start: 20200304, end: 20200505
  11. GASMOTIN [Concomitant]
     Active Substance: MOSAPRIDE CITRATE
     Indication: GASTROINTESTINAL DISORDER PROPHYLAXIS
     Dosage: 5 MG, BID
     Route: 048
     Dates: start: 20200316, end: 20200426
  12. LASIX [Concomitant]
     Active Substance: FUROSEMIDE
     Indication: PROPHYLAXIS
     Dosage: 20 MG, QD
     Route: 048
     Dates: start: 20200408, end: 20200415
  13. FLUCOZOLE [Concomitant]
     Indication: INFECTION PROPHYLAXIS
     Dosage: 1000 MG, BID
     Route: 048
     Dates: start: 20200224, end: 20200403
  14. ALMAX [Concomitant]
     Indication: GASTROINTESTINAL DISORDER PROPHYLAXIS
     Dosage: 15 ML, TID
     Route: 048
     Dates: start: 20200331, end: 20200415

REACTIONS (1)
  - Pneumonia cytomegaloviral [Fatal]

NARRATIVE: CASE EVENT DATE: 20200415
